FAERS Safety Report 4788256-7 (Version None)
Quarter: 2005Q4

REPORT INFORMATION
  Report Type: 
  Country: None (occurrence: None)
  Receive Date: 20051003
  Receipt Date: 20050926
  Transmission Date: 20060501
  Serious: Yes (Other)
  Sender: FDA-Public Use
  Company Number: 2005133917

PATIENT
  Sex: Female
  Weight: 47.6277 kg

DRUGS (5)
  1. LIPITOR [Suspect]
     Indication: BLOOD CHOLESTEROL INCREASED
     Dosage: 20 MG (1 IN 1 D)
     Dates: start: 20030101
  2. GRAPEFRUIT JUICE (CITRUS PARADISI FRUT JUICE) [Suspect]
     Indication: ILL-DEFINED DISORDER
  3. LISINOPRIL [Concomitant]
  4. HYDROCHLOROTHIAZIDE [Concomitant]
  5. ACETYLSALICYLIC ACID SRT [Concomitant]

REACTIONS (2)
  - BREAST CANCER FEMALE [None]
  - MUSCLE SPASMS [None]
